FAERS Safety Report 24011464 (Version 1)
Quarter: 2024Q2

REPORT INFORMATION
  Report Type: Report from Study
  Country: DE (occurrence: DE)
  Receive Date: 20240625
  Receipt Date: 20240625
  Transmission Date: 20240716
  Serious: Yes (Other)
  Sender: FDA-Public Use
  Company Number: DE-JNJFOC-20230418512

PATIENT
  Age: 16 Year
  Sex: Female

DRUGS (3)
  1. REMICADE [Suspect]
     Active Substance: INFLIXIMAB
     Indication: Crohn^s disease
     Route: 041
     Dates: start: 20100331, end: 20100415
  2. REMICADE [Suspect]
     Active Substance: INFLIXIMAB
     Route: 041
     Dates: start: 20100927, end: 20121001
  3. REMICADE [Suspect]
     Active Substance: INFLIXIMAB
     Route: 041
     Dates: start: 20121112, end: 20121112

REACTIONS (7)
  - Haematochezia [Recovered/Resolved]
  - Dermatitis [Recovered/Resolved]
  - Fistula [Recovered/Resolved]
  - Iron deficiency [Recovered/Resolved]
  - Complication associated with device [Recovered/Resolved]
  - Abdominal pain upper [Recovered/Resolved]
  - Wound abscess [Recovered/Resolved]

NARRATIVE: CASE EVENT DATE: 20150413
